FAERS Safety Report 8570037 (Version 6)
Quarter: 2015Q1

REPORT INFORMATION
  Report Type: Report from Study
  Country: CO (occurrence: CO)
  Receive Date: 20120518
  Receipt Date: 20150115
  Transmission Date: 20150721
  Serious: Yes (Death, Hospitalization)
  Sender: FDA-Public Use
  Company Number: CO-ROCHE-1068683

PATIENT
  Age: 53 Year
  Sex: Male
  Weight: 58 kg

DRUGS (7)
  1. MORPHINE SOLUTION [Concomitant]
     Route: 048
     Dates: start: 20120320, end: 20120509
  2. METOCLOPRAMIDE. [Concomitant]
     Active Substance: METOCLOPRAMIDE
     Route: 065
     Dates: start: 20120424, end: 20120509
  3. VEMURAFENIB [Suspect]
     Active Substance: VEMURAFENIB
     Indication: METASTATIC MALIGNANT MELANOMA
     Dosage: THE LAST DOSE PRIOR TO THE SAE WAS 9 MAY 2012
     Route: 048
     Dates: start: 20120326
  4. ACETAMINOPHEN. [Concomitant]
     Active Substance: ACETAMINOPHEN
     Route: 065
     Dates: start: 20120226, end: 20120508
  5. METOCLOPRAMIDE. [Concomitant]
     Active Substance: METOCLOPRAMIDE
     Route: 042
     Dates: start: 20120508, end: 20120509
  6. SALBUTAMOL INHALER [Concomitant]
     Dosage: DOSE : 6 PUFFS
     Route: 065
     Dates: start: 20120428, end: 20120508
  7. MORPHINE SOLUTION [Concomitant]
     Route: 042
     Dates: start: 20120508, end: 20120509

REACTIONS (1)
  - General physical health deterioration [Fatal]

NARRATIVE: CASE EVENT DATE: 20120508
